FAERS Safety Report 10054650 (Version 2)
Quarter: 2014Q2

REPORT INFORMATION
  Report Type: Spontaneous
  Country: US (occurrence: US)
  Receive Date: 20140402
  Receipt Date: 20140425
  Transmission Date: 20141212
  Serious: Yes (Other)
  Sender: FDA-Public Use
  Company Number: US-AMGEN-USASP2014021234

PATIENT
  Age: 61 Year
  Sex: Female

DRUGS (2)
  1. ENBREL [Suspect]
     Indication: PSORIASIS
     Dosage: 50 MG, 2 TIMES/WK
     Route: 065
     Dates: start: 20070101, end: 20140409
  2. STELARA [Concomitant]
     Dosage: UNK
     Dates: start: 201311

REACTIONS (7)
  - Memory impairment [Recovered/Resolved]
  - Mammogram abnormal [Not Recovered/Not Resolved]
  - Skin plaque [Not Recovered/Not Resolved]
  - Balance disorder [Recovered/Resolved]
  - Speech disorder [Recovered/Resolved]
  - Psoriasis [Unknown]
  - Injection site pain [Recovered/Resolved]
